FAERS Safety Report 14947754 (Version 1)
Quarter: 2018Q2

REPORT INFORMATION
  Report Type: Spontaneous
  Country: RO (occurrence: RO)
  Receive Date: 20180529
  Receipt Date: 20180529
  Transmission Date: 20180711
  Serious: Yes (Other)
  Sender: FDA-Public Use
  Company Number: RO-ASTRAZENECA-2018SE69378

PATIENT
  Age: 77 Year
  Sex: Female

DRUGS (8)
  1. BRILIQUE [Suspect]
     Active Substance: TICAGRELOR
     Indication: STENT PLACEMENT
     Route: 048
  2. BETALOC ZOK [Concomitant]
     Active Substance: METOPROLOL SUCCINATE
  3. ASA [Concomitant]
     Active Substance: ASPIRIN
     Indication: MYOCARDIAL INFARCTION
  4. SORTIS [Concomitant]
     Active Substance: ATORVASTATIN
  5. PRESTARIUM [Concomitant]
     Active Substance: PERINDOPRIL
  6. ASA [Concomitant]
     Active Substance: ASPIRIN
     Indication: STENT PLACEMENT
  7. PREDUCTAL [Concomitant]
     Active Substance: TRIMETAZIDINE DIHYDROCHLORIDE
  8. BRILIQUE [Suspect]
     Active Substance: TICAGRELOR
     Indication: MYOCARDIAL INFARCTION
     Route: 048

REACTIONS (1)
  - Anaemia [Unknown]
